FAERS Safety Report 10371382 (Version 1)
Quarter: 2014Q1

REPORT INFORMATION
  Report Type: Spontaneous
  Country: US (occurrence: None)
  Receive Date: 20140306
  Receipt Date: 20140306
  Transmission Date: 20141002
  Serious: Yes (Hospitalization)
  Sender: FDA-Public Use
  Company Number: 163-21880-13010403

PATIENT
  Age: 61 Year
  Sex: Male

DRUGS (7)
  1. REVLIMID [Suspect]
     Indication: PLASMA CELL MYELOMA
     Dosage: 5 MG, 14 IN 14 D, PO
     Route: 048
     Dates: start: 20101201
  2. ALLOPURINOL (ALLOPURINOL) (UNKNOWN) [Concomitant]
  3. FAMOTIDINE (FAMOTIDINE) (UNKNOWN) [Concomitant]
  4. LOSARTAN POTASSIUM (LOSARTAN POTASSIUM) (UNKNOWN) [Concomitant]
  5. OMEPRAZOLE (OMEPRAZOLE) (UNKNOWN) [Concomitant]
  6. SUCRALFATE (SUCRALFATE) (UNKNOWN) [Concomitant]
  7. XANAX (ALPRAZOLAM) (UNKNOWN) [Concomitant]

REACTIONS (1)
  - Herpes zoster [None]
